FAERS Safety Report 5187614-9 (Version None)
Quarter: 2006Q4

REPORT INFORMATION
  Report Type: 
  Country: None (occurrence: None)
  Receive Date: 20061220
  Receipt Date: 20051216
  Transmission Date: 20070319
  Serious: No
  Sender: FDA-Public Use
  Company Number: US-AMGEN-US161829

PATIENT
  Sex: Male

DRUGS (2)
  1. ENBREL [Suspect]
     Indication: ANKYLOSING SPONDYLITIS
     Route: 065
     Dates: start: 20040901, end: 20051201
  2. INDOCIN [Concomitant]
     Route: 065
     Dates: start: 20040101

REACTIONS (1)
  - FACIAL PALSY [None]
